FAERS Safety Report 6283776-0 (Version None)
Quarter: 2009Q3

REPORT INFORMATION
  Report Type: 
  Country: None (occurrence: None)
  Receive Date: 20090724
  Receipt Date: 20090715
  Transmission Date: 20100115
  Serious: Yes (Other)
  Sender: FDA-Public Use
  Company Number: ES-ASTRAZENECA-2009SE04907

PATIENT
  Age: 19 Year
  Sex: Male

DRUGS (4)
  1. SEROQUEL XR [Suspect]
     Indication: SCHIZOPHRENIA, CATATONIC TYPE
     Route: 048
     Dates: start: 20090405, end: 20090414
  2. HALOPERIDOL [Concomitant]
     Indication: SCHIZOPHRENIA, CATATONIC TYPE
     Route: 048
     Dates: end: 20090408
  3. HALOPERIDOL [Concomitant]
     Dosage: 80 DROPS PER DAY
     Route: 048
     Dates: start: 20090407, end: 20090415
  4. AKINETON [Concomitant]
     Route: 048
     Dates: start: 20050101

REACTIONS (2)
  - HYPERTRANSAMINASAEMIA [None]
  - RHABDOMYOLYSIS [None]
